FAERS Safety Report 9168441 (Version 3)
Quarter: 2013Q4

REPORT INFORMATION
  Report Type: Spontaneous
  Country: US (occurrence: US)
  Receive Date: 20130318
  Receipt Date: 20131119
  Transmission Date: 20140711
  Serious: Yes (Hospitalization, Disabling, Other)
  Sender: FDA-Public Use
  Company Number: US-009507513-1303USA006779

PATIENT
  Sex: Female
  Weight: 80.73 kg

DRUGS (3)
  1. FOSAMAX [Suspect]
     Indication: OSTEOPOROSIS
     Dosage: 10 MG, UNK
     Route: 048
     Dates: start: 199509, end: 200110
  2. FOSAMAX [Suspect]
     Dosage: 70 MG, UNK
     Route: 048
     Dates: start: 200110, end: 200512
  3. SINGULAIR [Concomitant]
     Indication: RHINITIS ALLERGIC
     Dosage: 10 MG, HS
     Dates: start: 2003, end: 2011

REACTIONS (74)
  - Intramedullary rod insertion [Unknown]
  - Osteoma [Not Recovered/Not Resolved]
  - Fracture nonunion [Recovered/Resolved]
  - Rotator cuff repair [Unknown]
  - Femur fracture [Unknown]
  - Tibia fracture [Unknown]
  - Femur fracture [Recovered/Resolved]
  - Femur fracture [Unknown]
  - Femur fracture [Unknown]
  - Internal fixation of fracture [Unknown]
  - Fracture nonunion [Not Recovered/Not Resolved]
  - Bone graft [Unknown]
  - Bone graft [Unknown]
  - Haematocrit decreased [Unknown]
  - Red blood cell count decreased [Unknown]
  - Bone graft [Unknown]
  - Spinal operation [Unknown]
  - Cholecystectomy [Unknown]
  - Femur fracture [Unknown]
  - Musculoskeletal pain [Not Recovered/Not Resolved]
  - Barrett^s oesophagus [Unknown]
  - Hypertension [Unknown]
  - Depression [Unknown]
  - Pernicious anaemia [Unknown]
  - Calcium deficiency [Unknown]
  - Peptic ulcer [Unknown]
  - Pain [Unknown]
  - Foot fracture [Unknown]
  - Osteoarthritis [Unknown]
  - Exostosis [Unknown]
  - Bone infarction [Unknown]
  - Fibromyalgia [Unknown]
  - Fall [Unknown]
  - Joint injury [Unknown]
  - Back injury [Unknown]
  - Bursitis [Unknown]
  - Intervertebral disc degeneration [Unknown]
  - Rotator cuff syndrome [Unknown]
  - Osteoma [Unknown]
  - Hyperlipidaemia [Unknown]
  - Appendicectomy [Unknown]
  - Ovarian cystectomy [Unknown]
  - Cataract [Unknown]
  - Bunion [Unknown]
  - Granuloma [Unknown]
  - Rib fracture [Unknown]
  - Clavicle fracture [Unknown]
  - Bunion operation [Unknown]
  - Scoliosis [Unknown]
  - Arthropathy [Unknown]
  - Bursitis [Unknown]
  - Rib fracture [Unknown]
  - Bone metabolism disorder [Unknown]
  - Vascular calcification [Unknown]
  - Oophorectomy [Unknown]
  - Vascular calcification [Unknown]
  - Engraft failure [Unknown]
  - Spinal fracture [Unknown]
  - Osteopenia [Unknown]
  - Scapula fracture [Unknown]
  - Fracture nonunion [Unknown]
  - Engraft failure [Unknown]
  - Scoliosis [Unknown]
  - Fracture malunion [Unknown]
  - Hip deformity [Unknown]
  - Bone operation [Unknown]
  - Sciatica [Unknown]
  - Enteritis [Unknown]
  - Malnutrition [Not Recovered/Not Resolved]
  - Weight decreased [Unknown]
  - Gallbladder enlargement [Unknown]
  - Stent placement [Unknown]
  - Arthralgia [Not Recovered/Not Resolved]
  - Back pain [Recovered/Resolved]
